FAERS Safety Report 4515709-9 (Version None)
Quarter: 2004Q4

REPORT INFORMATION
  Report Type: 
  Country: None (occurrence: None)
  Receive Date: 20041130
  Receipt Date: 20040910
  Transmission Date: 20050328
  Serious: Yes (Death)
  Sender: FDA-Public Use
  Company Number: 2004S1002729

PATIENT
  Age: 63 Year
  Sex: Female

DRUGS (2)
  1. CLOZAPINE [Suspect]
     Indication: SCHIZOAFFECTIVE DISORDER
     Dosage: 75 MG HS, ORAL
     Route: 048
     Dates: start: 20040723, end: 20040908
  2. CLOZAPINE [Suspect]
     Indication: SCHIZOAFFECTIVE DISORDER
     Dosage: 100 MG HS, ORAL
     Route: 048
     Dates: start: 20040723, end: 20040908

REACTIONS (1)
  - DEATH [None]
